FAERS Safety Report 9853177 (Version 1)
Quarter: 2014Q1

REPORT INFORMATION
  Report Type: Spontaneous
  Country: TW (occurrence: TW)
  Receive Date: 20140129
  Receipt Date: 20140129
  Transmission Date: 20141002
  Serious: Yes (Other)
  Sender: FDA-Public Use
  Company Number: PHHY2014TW008579

PATIENT
  Age: 62 Year
  Sex: Male

DRUGS (5)
  1. QUETIAPINE [Suspect]
     Dosage: 100 MG, PER DAY
  2. BUPROPION [Concomitant]
     Dosage: 150 MG, PER DAY
  3. BUPROPION [Concomitant]
     Dosage: 300 MG, PER DAY
  4. LAMOTRIGINE [Concomitant]
     Dosage: 25 MG, PER DAY
  5. LAMOTRIGINE [Concomitant]
     Dosage: 75 MG, PER DAY

REACTIONS (4)
  - Dry skin [Unknown]
  - Abdominal discomfort [Unknown]
  - Constipation [Unknown]
  - Dry mouth [Unknown]
